FAERS Safety Report 18882726 (Version 1)
Quarter: 2021Q1

REPORT INFORMATION
  Report Type: Spontaneous
  Country: US (occurrence: US)
  Receive Date: 20210212
  Receipt Date: 20210212
  Transmission Date: 20210420
  Serious: No
  Sender: FDA-Public Use
  Company Number: US-RECORDATI RARE DISEASES-2106669

PATIENT
  Age: 12 Year
  Sex: Male

DRUGS (5)
  1. CYSTADANE [Suspect]
     Active Substance: BETAINE
     Indication: VITAMIN B12 DEFICIENCY
     Dates: start: 200902
  2. VITAMIN B12 [Concomitant]
     Active Substance: CYANOCOBALAMIN
  3. FOLIC ACID. [Concomitant]
     Active Substance: FOLIC ACID
  4. VITAMINS NOS [Concomitant]
     Active Substance: VITAMINS
  5. CYSTADANE [Suspect]
     Active Substance: BETAINE
     Indication: METHYLENETETRAHYDROFOLATE REDUCTASE DEFICIENCY
     Dates: start: 200902

REACTIONS (3)
  - Swelling face [Unknown]
  - Hypersensitivity [Unknown]
  - Lip swelling [Unknown]

NARRATIVE: CASE EVENT DATE: 2020
